FAERS Safety Report 11097835 (Version 5)
Quarter: 2019Q3

REPORT INFORMATION
  Report Type: Spontaneous
  Country: US (occurrence: US)
  Receive Date: 20150507
  Receipt Date: 20190826
  Transmission Date: 20191004
  Serious: No
  Sender: FDA-Public Use
  Company Number: US-PFIZER INC-2015149960

PATIENT
  Age: 75 Year
  Sex: Female

DRUGS (7)
  1. ADVIL [Suspect]
     Active Substance: IBUPROFEN
  2. TRAMADOL. [Suspect]
     Active Substance: TRAMADOL
  3. NEURONTIN [Suspect]
     Active Substance: GABAPENTIN
     Dosage: UNK
  4. AVAPRO [Suspect]
     Active Substance: IRBESARTAN
     Dosage: UNK
  5. IRBESARTAN. [Suspect]
     Active Substance: IRBESARTAN
  6. CORTISONE [Suspect]
     Active Substance: CORTISONE
     Dosage: UNK
  7. ULTRAM [Suspect]
     Active Substance: TRAMADOL HYDROCHLORIDE
     Dosage: UNK

REACTIONS (1)
  - Drug hypersensitivity [Unknown]
